FAERS Safety Report 5997460-1 (Version None)
Quarter: 2008Q4

REPORT INFORMATION
  Report Type: 
  Country: None (occurrence: None)
  Receive Date: 20081212
  Receipt Date: 20081111
  Transmission Date: 20090506
  Serious: No
  Sender: FDA-Public Use
  Company Number: US-ABBOTT-08P-163-0487459-00

PATIENT
  Sex: Female
  Weight: 49.94 kg

DRUGS (10)
  1. HUMIRA [Suspect]
     Indication: CROHN'S DISEASE
     Route: 058
     Dates: start: 20080901
  2. MESALAMINE [Concomitant]
     Indication: ANTIINFLAMMATORY THERAPY
     Route: 048
     Dates: start: 20060101
  3. NORGESTIMATE AND ETHINYL ESTRADIOL [Concomitant]
     Indication: CONTRACEPTION
     Route: 048
  4. SERTRALINE [Concomitant]
     Indication: DEPRESSION
     Route: 048
     Dates: start: 20070101
  5. SERTRALINE [Concomitant]
     Indication: ANXIETY
  6. DELAVIRDINE MESYLATE [Concomitant]
     Indication: DEPRESSION
     Route: 048
     Dates: start: 20070101
  7. DELAVIRDINE MESYLATE [Concomitant]
     Indication: ANXIETY
  8. ONDANSETRON [Concomitant]
     Indication: NAUSEA
     Route: 048
  9. CLONAZEPAM [Concomitant]
     Indication: DEPRESSION
     Route: 048
     Dates: start: 20070101
  10. CLONAZEPAM [Concomitant]
     Indication: ANXIETY

REACTIONS (5)
  - ABDOMINAL PAIN [None]
  - CONTUSION [None]
  - CROHN'S DISEASE [None]
  - DIARRHOEA [None]
  - EPISTAXIS [None]
